FAERS Safety Report 8843888 (Version 3)
Quarter: 2013Q1

REPORT INFORMATION
  Report Type: Spontaneous
  Country: US (occurrence: US)
  Receive Date: 20121016
  Receipt Date: 20130319
  Transmission Date: 20140127
  Serious: No
  Sender: FDA-Public Use
  Company Number: US-PFIZER INC-2012254983

PATIENT
  Age: 74 Year
  Sex: Female

DRUGS (12)
  1. INLYTA [Suspect]
     Indication: RENAL CANCER METASTATIC
     Dosage: 5 MG IN MORNING AND TWO TABLETS OF 1 MG IN THE EVENING
     Route: 048
     Dates: start: 20120705
  2. INLYTA [Suspect]
     Dosage: 5 MG, UNK
     Dates: start: 20130304
  3. CORTEF [Concomitant]
     Dosage: UNK
  4. AMLODIPINE BESILATE/BENAZEPRIL HYDROCHLORIDE [Concomitant]
     Dosage: UNK
  5. ASPIRIN [Concomitant]
     Dosage: UNK
  6. CALCIUM 500+ D [Concomitant]
     Dosage: UNK
  7. DIPHENOXYLATE W/ATROPINE SULFATE [Concomitant]
     Dosage: UNK
  8. FLUDROCORTISONE ACETATE [Concomitant]
     Dosage: UNK
  9. HYDROCODONE W/ACETAMINOPHEN [Concomitant]
     Dosage: UNK
  10. LEVOTHYROXINE SODIUM [Concomitant]
     Dosage: UNK
  11. PRILOSEC OTC [Concomitant]
     Dosage: UNK
  12. VITAMIN D3 [Concomitant]
     Dosage: UNK

REACTIONS (4)
  - Palmar-plantar erythrodysaesthesia syndrome [Unknown]
  - Arthralgia [Unknown]
  - Hypertension [Unknown]
  - Diarrhoea [Unknown]
